FAERS Safety Report 6138444-2 (Version None)
Quarter: 2009Q1

REPORT INFORMATION
  Report Type: 
  Country: None (occurrence: None)
  Receive Date: 20090331
  Receipt Date: 20090326
  Transmission Date: 20090719
  Serious: Yes (Hospitalization)
  Sender: FDA-Public Use
  Company Number: BE-BRISTOL-MYERS SQUIBB COMPANY-14563183

PATIENT
  Age: 56 Year
  Sex: Male

DRUGS (2)
  1. ABILIFY [Suspect]
  2. EFFEXOR [Interacting]

REACTIONS (2)
  - AKATHISIA [None]
  - DRUG INTERACTION [None]
